FAERS Safety Report 16457635 (Version 3)
Quarter: 2019Q3

REPORT INFORMATION
  Report Type: Report from Study
  Country: DE (occurrence: DE)
  Receive Date: 20190620
  Receipt Date: 20190827
  Transmission Date: 20191004
  Serious: Yes (Hospitalization, Other)
  Sender: FDA-Public Use
  Company Number: PHHY2019DE139441

PATIENT
  Age: 57 Year
  Sex: Male
  Weight: 120 kg

DRUGS (1)
  1. COSENTYX [Suspect]
     Active Substance: SECUKINUMAB
     Indication: PSORIASIS
     Dosage: UNK UNK, Q4W
     Route: 058
     Dates: start: 20190108

REACTIONS (6)
  - Upper gastrointestinal haemorrhage [Recovered/Resolved]
  - General physical health deterioration [Recovered/Resolved]
  - Melaena [Recovered/Resolved]
  - Normochromic normocytic anaemia [Recovered/Resolved]
  - Helicobacter duodenal ulcer [Recovered/Resolved]
  - Haemoglobin decreased [Recovered/Resolved]

NARRATIVE: CASE EVENT DATE: 20190201
